FAERS Safety Report 19806710 (Version 6)
Quarter: 2024Q2

REPORT INFORMATION
  Report Type: Spontaneous
  Country: US (occurrence: None)
  Receive Date: 20210908
  Receipt Date: 20240621
  Transmission Date: 20240716
  Serious: Yes (Life-Threatening, Hospitalization, Other)
  Sender: FDA-Public Use
  Company Number: 2021A717115

PATIENT
  Age: 515 Month
  Sex: Male
  Weight: 122.5 kg

DRUGS (47)
  1. XIGDUO XR [Suspect]
     Active Substance: DAPAGLIFLOZIN PROPANEDIOL\METFORMIN HYDROCHLORIDE
     Indication: Type 2 diabetes mellitus
     Route: 048
     Dates: start: 201508
  2. XIGDUO XR [Suspect]
     Active Substance: DAPAGLIFLOZIN PROPANEDIOL\METFORMIN HYDROCHLORIDE
     Indication: Weight decreased
     Route: 048
     Dates: start: 201508
  3. XIGDUO XR [Suspect]
     Active Substance: DAPAGLIFLOZIN PROPANEDIOL\METFORMIN HYDROCHLORIDE
     Indication: Blood pressure decreased
     Route: 048
     Dates: start: 201508
  4. XIGDUO XR [Suspect]
     Active Substance: DAPAGLIFLOZIN PROPANEDIOL\METFORMIN HYDROCHLORIDE
     Indication: Type 2 diabetes mellitus
     Route: 048
     Dates: start: 20170913
  5. XIGDUO XR [Suspect]
     Active Substance: DAPAGLIFLOZIN PROPANEDIOL\METFORMIN HYDROCHLORIDE
     Indication: Weight decreased
     Route: 048
     Dates: start: 20170913
  6. XIGDUO XR [Suspect]
     Active Substance: DAPAGLIFLOZIN PROPANEDIOL\METFORMIN HYDROCHLORIDE
     Indication: Blood pressure decreased
     Route: 048
     Dates: start: 20170913
  7. XIGDUO XR [Suspect]
     Active Substance: DAPAGLIFLOZIN PROPANEDIOL\METFORMIN HYDROCHLORIDE
     Indication: Type 2 diabetes mellitus
     Route: 048
     Dates: start: 20150831
  8. XIGDUO XR [Suspect]
     Active Substance: DAPAGLIFLOZIN PROPANEDIOL\METFORMIN HYDROCHLORIDE
     Indication: Weight decreased
     Route: 048
     Dates: start: 20150831
  9. XIGDUO XR [Suspect]
     Active Substance: DAPAGLIFLOZIN PROPANEDIOL\METFORMIN HYDROCHLORIDE
     Indication: Blood pressure decreased
     Route: 048
     Dates: start: 20150831
  10. XIGDUO XR [Suspect]
     Active Substance: DAPAGLIFLOZIN PROPANEDIOL\METFORMIN HYDROCHLORIDE
     Indication: Type 2 diabetes mellitus
     Route: 048
     Dates: start: 201508, end: 201802
  11. XIGDUO XR [Suspect]
     Active Substance: DAPAGLIFLOZIN PROPANEDIOL\METFORMIN HYDROCHLORIDE
     Indication: Weight decreased
     Route: 048
     Dates: start: 201508, end: 201802
  12. XIGDUO XR [Suspect]
     Active Substance: DAPAGLIFLOZIN PROPANEDIOL\METFORMIN HYDROCHLORIDE
     Indication: Blood pressure decreased
     Route: 048
     Dates: start: 201508, end: 201802
  13. LISINOPRIL [Concomitant]
     Active Substance: LISINOPRIL
     Indication: Hypertension
  14. SIMVASTATIN [Concomitant]
     Active Substance: SIMVASTATIN
  15. IBUPROFEN [Concomitant]
     Active Substance: IBUPROFEN
  16. DOXYCYCLINE [Concomitant]
     Active Substance: DOXYCYCLINE\DOXYCYCLINE HYCLATE
  17. GABAPENTIN [Concomitant]
     Active Substance: GABAPENTIN
  18. HYOSCYAMINE [Concomitant]
     Active Substance: HYOSCYAMINE
  19. HYDROCODONE [Concomitant]
     Active Substance: HYDROCODONE
  20. RIFAMPIN [Concomitant]
     Active Substance: RIFAMPIN
  21. DICLOFENAC [Concomitant]
     Active Substance: DICLOFENAC
  22. NAPROXEN [Concomitant]
     Active Substance: NAPROXEN
  23. CYCLOBENZAPRINE [Concomitant]
     Active Substance: CYCLOBENZAPRINE
  24. MINOCYCLINE [Concomitant]
     Active Substance: MINOCYCLINE HYDROCHLORIDE
  25. METFORMIN [Concomitant]
     Active Substance: METFORMIN HYDROCHLORIDE
  26. TRIMETHOPRIM [Concomitant]
     Active Substance: TRIMETHOPRIM
  27. BOLUS [Concomitant]
  28. FLUCONAZOLE [Concomitant]
     Active Substance: FLUCONAZOLE
  29. AMOXICILLIN [Concomitant]
     Active Substance: AMOXICILLIN
  30. SULFAMETHOXAZOLE\TRIMETHOPRIM [Concomitant]
     Active Substance: SULFAMETHOXAZOLE\TRIMETHOPRIM
  31. METHADONE [Concomitant]
     Active Substance: METHADONE HYDROCHLORIDE
  32. GLUCOTROL [Concomitant]
     Active Substance: GLIPIZIDE
  33. MONODOX [Concomitant]
     Active Substance: DOXYCYCLINE
  34. OMEPRAZOLE [Concomitant]
     Active Substance: DONEPEZIL HYDROCHLORIDE\OMEPRAZOLE\OMEPRAZOLE MAGNESIUM
     Dates: start: 20181213
  35. MONTELUKAST [Concomitant]
     Active Substance: MONTELUKAST SODIUM
     Dates: start: 20181213
  36. LANTUS [Concomitant]
     Active Substance: INSULIN GLARGINE
     Indication: Diabetes mellitus
  37. ATORVASTATIN [Concomitant]
     Active Substance: ATORVASTATIN
     Indication: Blood cholesterol increased
  38. METFORMIN [Concomitant]
     Active Substance: METFORMIN HYDROCHLORIDE
     Indication: Diabetes mellitus
  39. CEPHALEXIN [Concomitant]
     Active Substance: CEPHALEXIN
  40. VANCOMYCIN [Concomitant]
     Active Substance: VANCOMYCIN
  41. OXYCODONE [Concomitant]
     Active Substance: OXYCODONE\OXYCODONE HYDROCHLORIDE
  42. GLIPIZIDE [Concomitant]
     Active Substance: GLIPIZIDE
  43. LORAZEPAM [Concomitant]
     Active Substance: LORAZEPAM
  44. CHOLECALCIFEROL [Concomitant]
     Active Substance: CHOLECALCIFEROL
  45. FENOFIBRATE [Concomitant]
     Active Substance: FENOFIBRATE
  46. ONDANSETRON [Concomitant]
     Active Substance: ONDANSETRON
  47. ERGOCALCIFEROL [Concomitant]
     Active Substance: ERGOCALCIFEROL

REACTIONS (11)
  - Fournier^s gangrene [Unknown]
  - Musculoskeletal pain [Unknown]
  - Abscess limb [Unknown]
  - Sepsis [Unknown]
  - Gangrene [Unknown]
  - Subcutaneous abscess [Unknown]
  - Cellulitis [Unknown]
  - Necrotising fasciitis [Unknown]
  - Genital abscess [Unknown]
  - Anal abscess [Unknown]
  - Abdominal wall abscess [Unknown]

NARRATIVE: CASE EVENT DATE: 20180101
